FAERS Safety Report 4627793-2 (Version None)
Quarter: 2005Q2

REPORT INFORMATION
  Report Type: 
  Country: None (occurrence: None)
  Receive Date: 20050406
  Receipt Date: 20050210
  Transmission Date: 20051028
  Serious: Yes (Life-Threatening, Hospitalization, Other)
  Sender: FDA-Public Use
  Company Number: JP-BRISTOL-MYERS SQUIBB COMPANY-12865820

PATIENT
  Age: 78 Year
  Sex: Male

DRUGS (10)
  1. MEVALOTIN [Suspect]
     Indication: HYPERLIPIDAEMIA
     Route: 048
     Dates: start: 20040922, end: 20050113
  2. CALSLOT [Concomitant]
     Indication: HYPERTENSION
     Dates: start: 20040825, end: 20050113
  3. DOGMATYL [Concomitant]
     Indication: GASTRIC ULCER
     Dates: end: 20050113
  4. FAMOTIDINE [Concomitant]
     Indication: GASTRIC ULCER
     Dates: start: 20040825, end: 20050113
  5. OXATOMIDE [Concomitant]
     Indication: GASTRIC ULCER
     Dates: end: 20050113
  6. ULGUT [Concomitant]
     Indication: GASTRIC ULCER
     Dates: end: 20050113
  7. PROMAC [Concomitant]
     Indication: GASTRIC ULCER
     Dates: end: 20050113
  8. ALOSENN [Concomitant]
     Indication: CONSTIPATION
     Dates: end: 20050113
  9. MAGNESIUM OXIDE [Concomitant]
     Indication: CONSTIPATION
  10. PL GRANULES [Concomitant]
     Indication: NASOPHARYNGITIS

REACTIONS (6)
  - DISSEMINATED INTRAVASCULAR COAGULATION [None]
  - GASTROENTERITIS [None]
  - HEPATIC FUNCTION ABNORMAL [None]
  - INFECTION [None]
  - RENAL IMPAIRMENT [None]
  - RHABDOMYOLYSIS [None]
